FAERS Safety Report 6236514-1 (Version None)
Quarter: 2009Q2

REPORT INFORMATION
  Report Type: 
  Country: None (occurrence: None)
  Receive Date: 20090619
  Receipt Date: 20090612
  Transmission Date: 20091009
  Serious: Yes (Death, Hospitalization)
  Sender: FDA-Public Use
  Company Number: A0791205A

PATIENT
  Age: 69 Year
  Sex: Female

DRUGS (3)
  1. COREG CR [Suspect]
     Indication: DRUG USE FOR UNKNOWN INDICATION
     Dosage: 10MG PER DAY
     Route: 048
     Dates: start: 20081016
  2. COUMADIN [Concomitant]
  3. THYROID MEDICATION [Concomitant]

REACTIONS (5)
  - BRAIN INJURY [None]
  - DEATH [None]
  - FATIGUE [None]
  - MYOCARDIAL INFARCTION [None]
  - ROAD TRAFFIC ACCIDENT [None]
